FAERS Safety Report 4675401-7 (Version None)
Quarter: 2005Q2

REPORT INFORMATION
  Report Type: 
  Country: None (occurrence: None)
  Receive Date: 20050527
  Receipt Date: 20050222
  Transmission Date: 20051028
  Serious: No
  Sender: FDA-Public Use
  Company Number: US-BRISTOL-MYERS SQUIBB COMPANY-12870697

PATIENT
  Sex: Female
  Weight: 86 kg

DRUGS (5)
  1. ABILIFY [Suspect]
     Indication: THINKING ABNORMAL
     Dosage: CONSUMER REDUCED DOSE TO 2.5 MG/DAY THEN 1.5 MG/DAY
     Route: 048
     Dates: start: 20050105
  2. LEXAPRO [Concomitant]
  3. AMBIEN [Concomitant]
  4. ATIVAN [Concomitant]
  5. TOPAMAX [Concomitant]

REACTIONS (7)
  - DEPRESSION [None]
  - FACE OEDEMA [None]
  - INCREASED APPETITE [None]
  - MUSCLE TIGHTNESS [None]
  - NIGHT SWEATS [None]
  - VISION BLURRED [None]
  - WEIGHT INCREASED [None]
